FAERS Safety Report 22146323 (Version 1)
Quarter: 2023Q1

REPORT INFORMATION
  Report Type: Spontaneous
  Country: NL (occurrence: NL)
  Receive Date: 20230328
  Receipt Date: 20230328
  Transmission Date: 20230417
  Serious: Yes (Other)
  Sender: FDA-Public Use
  Company Number: None

PATIENT
  Sex: Female
  Weight: 75 kg

DRUGS (2)
  1. ZOLPIDEM [Suspect]
     Active Substance: ZOLPIDEM TARTRATE
     Indication: Insomnia
     Dosage: 10 MG, QD, (1X PER DAG 1 STUK) (GENEESMIDDEL VOORGESCHREVEN DOOR ARTS: JA)
     Route: 065
     Dates: start: 20220527
  2. OXAZEPAM [Suspect]
     Active Substance: OXAZEPAM
     Indication: Restlessness
     Dosage: 10 MG, Q8H, (3 X PER DAG 1 TABLET) (GENEESMIDDEL VOORGESCHREVEN DOOR ARTS: JA)
     Route: 065
     Dates: start: 20220520

REACTIONS (2)
  - Disinhibition [Not Recovered/Not Resolved]
  - Confusional state [Recovering/Resolving]
